FAERS Safety Report 5533232-X (Version None)
Quarter: 2007Q4

REPORT INFORMATION
  Report Type: 
  Country: None (occurrence: None)
  Receive Date: 20071120
  Receipt Date: 20070719
  Transmission Date: 20080405
  Serious: No
  Sender: FDA-Public Use
  Company Number: WAES 0706USA04679

PATIENT
  Age: 52 Year
  Sex: Male
  Weight: 121.564 kg

DRUGS (6)
  1. JANUVIA [Suspect]
     Indication: DIABETES MELLITUS
     Dosage: 100 MG/DAILY/PO
     Route: 048
     Dates: start: 20070409, end: 20070416
  2. ALTACE [Concomitant]
  3. AMARYL [Concomitant]
  4. NEURONTIN [Concomitant]
  5. PRAVACHOL [Concomitant]
  6. SYNTHROID [Concomitant]

REACTIONS (1)
  - PHARYNGOLARYNGEAL PAIN [None]
